FAERS Safety Report 18752195 (Version 1)
Quarter: 2021Q1

REPORT INFORMATION
  Report Type: Spontaneous
  Country: US (occurrence: US)
  Receive Date: 20210118
  Receipt Date: 20210118
  Transmission Date: 20210419
  Serious: No
  Sender: FDA-Public Use
  Company Number: US-FOUNDATIONCONSUMERHC-2020-US-021411

PATIENT
  Age: 21 Year
  Sex: Female
  Weight: 61.69 kg

DRUGS (1)
  1. PLAN B ONE?STEP [Suspect]
     Active Substance: LEVONORGESTREL
     Indication: POST COITAL CONTRACEPTION
     Dosage: 1.5MG X 2 DOSES (1ST MONTH AGO, 2ND DOSE 2 WEEKS AFTER THE FIRST DOSE)
     Route: 048
     Dates: start: 202009, end: 202009

REACTIONS (3)
  - Vaginal haemorrhage [Unknown]
  - Menorrhagia [Unknown]
  - Menstruation delayed [Unknown]

NARRATIVE: CASE EVENT DATE: 202009
